FAERS Safety Report 19937818 (Version 2)
Quarter: 2021Q4

REPORT INFORMATION
  Report Type: Spontaneous
  Country: US (occurrence: US)
  Receive Date: 20211011
  Receipt Date: 20211111
  Transmission Date: 20220303
  Serious: Yes (Hospitalization)
  Sender: FDA-Public Use
  Company Number: US-BIOVITRUM-2021US9006

PATIENT
  Sex: Male

DRUGS (1)
  1. SYNAGIS [Suspect]
     Active Substance: PALIVIZUMAB
     Indication: Respiratory syncytial virus infection
     Dosage: 39MG
     Dates: start: 20210908

REACTIONS (3)
  - Respiratory syncytial virus infection [Recovered/Resolved]
  - Cough [Unknown]
  - Nasal congestion [Unknown]
